FAERS Safety Report 15772068 (Version 1)
Quarter: 2018Q4

REPORT INFORMATION
  Report Type: Spontaneous
  Country: US (occurrence: US)
  Receive Date: 20181228
  Receipt Date: 20181228
  Transmission Date: 20190205
  Serious: No
  Sender: FDA-Public Use
  Company Number: US-SA-2018SA394387

PATIENT
  Age: 54 Year
  Sex: Male

DRUGS (3)
  1. DUPIXENT [Suspect]
     Active Substance: DUPILUMAB
     Dosage: UNK
     Route: 058
     Dates: start: 20181206, end: 20181206
  2. DUPIXENT [Suspect]
     Active Substance: DUPILUMAB
     Dosage: UNK DF, QOW
     Route: 058
     Dates: start: 20181114, end: 20181114
  3. DUPIXENT [Suspect]
     Active Substance: DUPILUMAB
     Indication: DERMATITIS ATOPIC
     Dosage: UNK DF, 1X
     Route: 058
     Dates: start: 20181031, end: 20181031

REACTIONS (2)
  - Extra dose administered [Unknown]
  - Product use issue [Unknown]
